FAERS Safety Report 24535617 (Version 3)
Quarter: 2025Q1

REPORT INFORMATION
  Report Type: Spontaneous
  Country: BE (occurrence: BE)
  Receive Date: 20241022
  Receipt Date: 20250128
  Transmission Date: 20250408
  Serious: Yes (Hospitalization, Other)
  Sender: NOVARTIS
  Company Number: BE-002147023-NVSC2024BE205491

PATIENT
  Age: 49 Year
  Sex: Female

DRUGS (7)
  1. TERBINAFINE [Suspect]
     Active Substance: TERBINAFINE
     Indication: Onychomycosis
     Route: 065
  2. TIBOLONE [Concomitant]
     Active Substance: TIBOLONE
     Indication: Menopausal symptoms
     Route: 065
  3. TIBOLONE [Concomitant]
     Active Substance: TIBOLONE
     Route: 065
  4. TIBOLONE [Concomitant]
     Active Substance: TIBOLONE
     Route: 065
  5. TIBOLONE [Concomitant]
     Active Substance: TIBOLONE
     Route: 065
  6. ASPIRIN [Concomitant]
     Active Substance: ASPIRIN
     Indication: Product used for unknown indication
     Route: 065
  7. MONTELUKAST [Concomitant]
     Active Substance: MONTELUKAST
     Indication: Hypersensitivity
     Route: 065

REACTIONS (9)
  - Agranulocytosis [Recovering/Resolving]
  - Pericarditis [Recovering/Resolving]
  - Parotitis [Recovering/Resolving]
  - C-reactive protein increased [Unknown]
  - Parotid gland enlargement [Recovered/Resolved]
  - Cough [Recovering/Resolving]
  - Oropharyngeal pain [Recovering/Resolving]
  - Chest pain [Recovering/Resolving]
  - Pyrexia [Recovering/Resolving]
